FAERS Safety Report 6061547-8 (Version None)
Quarter: 2009Q1

REPORT INFORMATION
  Report Type: 
  Country: None (occurrence: None)
  Receive Date: 20090129
  Receipt Date: 20090129
  Transmission Date: 20090719
  Serious: No
  Sender: FDA-Public Use
  Company Number: None

PATIENT
  Age: 48 Year
  Sex: Male
  Weight: 81.6475 kg

DRUGS (1)
  1. NABUMETONE [Suspect]
     Indication: MUSCULOSKELETAL DISORDER
     Dosage: 750MG TWICE A DAY PO
     Route: 048
     Dates: start: 20071031, end: 20071215

REACTIONS (1)
  - TINNITUS [None]
